FAERS Safety Report 11250195 (Version 1)
Quarter: 2015Q3

REPORT INFORMATION
  Report Type: Spontaneous
  Country: US (occurrence: US)
  Receive Date: 20150708
  Receipt Date: 20150708
  Transmission Date: 20151125
  Serious: Yes (Other)
  Sender: FDA-Public Use
  Company Number: US-ELI_LILLY_AND_COMPANY-US200710000149

PATIENT
  Sex: Male

DRUGS (2)
  1. HEPARIN SODIUM. [Concomitant]
     Active Substance: HEPARIN SODIUM
     Indication: PROPHYLAXIS
     Route: 058
     Dates: start: 2007
  2. XIGRIS [Suspect]
     Active Substance: DROTRECOGIN ALFA (ACTIVATED)
     Indication: SEPTIC SHOCK
     Dosage: STANDARD DOSE
     Dates: start: 20070929

REACTIONS (1)
  - Activated partial thromboplastin time prolonged [Not Recovered/Not Resolved]
